FAERS Safety Report 4571485-5 (Version None)
Quarter: 2005Q1

REPORT INFORMATION
  Report Type: 
  Country: None (occurrence: None)
  Receive Date: 20050118
  Receipt Date: 20031124
  Transmission Date: 20050727
  Serious: Yes (Hospitalization, Disabling)
  Sender: FDA-Public Use
  Company Number: HQWYE035617JUL03

PATIENT
  Age: 62 Year
  Sex: Female
  Weight: 59.47 kg

DRUGS (6)
  1. PREMPRO [Suspect]
     Indication: HORMONE REPLACEMENT THERAPY
     Dosage: SEE IMAGE
     Route: 048
     Dates: start: 19960417, end: 19991025
  2. PREMPRO [Suspect]
     Indication: HORMONE REPLACEMENT THERAPY
     Dosage: SEE IMAGE
     Route: 048
     Dates: start: 19991026, end: 20010917
  3. PREMPRO [Suspect]
     Indication: HORMONE REPLACEMENT THERAPY
     Dosage: SEE IMAGE
     Route: 048
     Dates: start: 20011010, end: 20011129
  4. COUMADIN [Concomitant]
  5. COZAAR [Concomitant]
  6. LANOXIN [Concomitant]

REACTIONS (1)
  - CEREBROVASCULAR ACCIDENT [None]
